FAERS Safety Report 4352702-3 (Version None)
Quarter: 2004Q2

REPORT INFORMATION
  Report Type: 
  Country: None (occurrence: None)
  Receive Date: 20040429
  Receipt Date: 20040419
  Transmission Date: 20050107
  Serious: Yes (Hospitalization)
  Sender: FDA-Public Use
  Company Number: 04P-163-0257926-00

PATIENT
  Age: 71 Year
  Sex: Female
  Weight: 51.2565 kg

DRUGS (9)
  1. HUMIRA [Suspect]
     Indication: OSTEOARTHRITIS
     Dosage: 40 MG, 1 IN 2 WK, SUBCUTANEOUS
     Route: 058
     Dates: start: 20040115
  2. HUMIRA [Suspect]
     Indication: RHEUMATOID ARTHRITIS
     Dosage: 40 MG, 1 IN 2 WK, SUBCUTANEOUS
     Route: 058
     Dates: start: 20040115
  3. PREDNISONE [Concomitant]
  4. NIFEDIPINE [Concomitant]
  5. METHOTREXATE SODIUM [Concomitant]
  6. EQUINOL [Concomitant]
  7. CALCIUM [Concomitant]
  8. LANSOPRAZOLE [Concomitant]
  9. METOPROLOL [Concomitant]

REACTIONS (5)
  - ARTHRALGIA [None]
  - BACK PAIN [None]
  - CARDIAC DISORDER [None]
  - CHEST PAIN [None]
  - OESOPHAGEAL STENOSIS [None]
